FAERS Safety Report 16573940 (Version 7)
Quarter: 2021Q4

REPORT INFORMATION
  Report Type: Spontaneous
  Country: DE (occurrence: DE)
  Receive Date: 20190715
  Receipt Date: 20211228
  Transmission Date: 20220303
  Serious: Yes (Hospitalization, Other)
  Sender: FDA-Public Use
  Company Number: DE-MYLANLABS-2019M1066170

PATIENT
  Sex: Female

DRUGS (90)
  1. VALSARTAN [Suspect]
     Active Substance: VALSARTAN
     Indication: Hypertension
     Dosage: 160 MILLIGRAM, BID, ONE IN THE MORNING AND ONE IN THE EVENING
     Dates: start: 201610, end: 201702
  2. VALSARTAN [Suspect]
     Active Substance: VALSARTAN
     Dosage: 240 MILLIGRAM, QD (80 MG IN THE MORNING AND ONE TABLET 160 MG IN THE EVENING)
     Dates: start: 201702, end: 201810
  3. VALSARTAN [Suspect]
     Active Substance: VALSARTAN
     Dosage: 80 MILLIGRAM, BID ((IN THE MORNING AND EVENING)
  4. VALSARTAN [Suspect]
     Active Substance: VALSARTAN
     Indication: Hypertension
     Dosage: UNK
     Dates: start: 20170816, end: 201709
  5. VALSARTAN [Suspect]
     Active Substance: VALSARTAN
     Indication: Hypertension
     Dosage: UNK
     Dates: start: 20181213, end: 201903
  6. VALSARTAN [Suspect]
     Active Substance: VALSARTAN
     Indication: Hypertension
     Dosage: UNK
     Dates: start: 20190304, end: 20190423
  7. VALSARTAN [Suspect]
     Active Substance: VALSARTAN
     Dosage: UNK
     Dates: start: 20190521, end: 20191021
  8. VALSARTAN [Suspect]
     Active Substance: VALSARTAN
     Indication: Hypertension
     Dosage: UNK
     Dates: start: 20190716, end: 20191017
  9. VALSARTAN [Suspect]
     Active Substance: VALSARTAN
     Indication: Hypertension
     Dosage: UNK
     Dates: start: 201903, end: 201906
  10. VALSARTAN [Suspect]
     Active Substance: VALSARTAN
     Dosage: UNK
     Dates: start: 201907, end: 201910
  11. VALSARTAN [Suspect]
     Active Substance: VALSARTAN
     Indication: Product used for unknown indication
     Dosage: 160 MILLIGRAM, QD, 1 TO 2 TABLETS DAILY
     Dates: start: 20170310, end: 20180427
  12. SIMVASTATIN [Concomitant]
     Active Substance: SIMVASTATIN
     Indication: Hypercholesterolaemia
     Dosage: 20 MILLIGRAM
     Dates: start: 20160512
  13. SIMVASTATIN [Concomitant]
     Active Substance: SIMVASTATIN
     Indication: Hypercholesterolaemia
     Dosage: UNK
     Dates: start: 20161010, end: 20170109
  14. SIMVASTATIN [Concomitant]
     Active Substance: SIMVASTATIN
     Dosage: UNK
     Dates: start: 20170410, end: 20170619
  15. CLARITHROMYCIN [Concomitant]
     Active Substance: CLARITHROMYCIN
     Indication: Bronchitis
     Dosage: UNK
     Dates: start: 20160310
  16. CLARITHROMYCIN [Concomitant]
     Active Substance: CLARITHROMYCIN
     Indication: Acute sinusitis
  17. PREDNISOLONE [Concomitant]
     Active Substance: PREDNISOLONE
     Indication: Bronchitis
     Dosage: UNK
     Dates: start: 20160404
  18. METOPROLOL RATIOPHARM COMP. [Concomitant]
     Indication: Hypertension
     Dosage: UNK
     Dates: start: 20161010, end: 20161117
  19. METOPROLOL RATIOPHARM COMP. [Concomitant]
     Dosage: UNK
     Dates: start: 20170109, end: 20170323
  20. METOPROLOL RATIOPHARM COMP. [Concomitant]
     Dosage: UNK
     Dates: start: 20170515, end: 20170619
  21. METOPROLOL RATIOPHARM COMP. [Concomitant]
     Dosage: UNK
     Dates: start: 20170814, end: 20171005
  22. METOPROLOL RATIOPHARM COMP. [Concomitant]
     Dosage: UNK
     Dates: start: 20171115, end: 20180305
  23. METOPROLOL RATIOPHARM COMP. [Concomitant]
     Dosage: UNK
     Dates: start: 20180608
  24. METOPROLOL TARTRATE [Concomitant]
     Active Substance: METOPROLOL TARTRATE
     Indication: Hypertension
     Dosage: 50 MILLIGRAM
     Dates: start: 20160419
  25. RAMIPRIL [Concomitant]
     Active Substance: RAMIPRIL
     Indication: Product used for unknown indication
     Dosage: 5 MILLIGRAM
     Dates: start: 20160412
  26. AMLODIPINE MALEATE [Concomitant]
     Active Substance: AMLODIPINE MALEATE
     Indication: Hypertension
     Dosage: UNK
     Dates: start: 20161024, end: 20170109
  27. AMLODIPINE MALEATE [Concomitant]
     Active Substance: AMLODIPINE MALEATE
     Dosage: UNK
     Dates: start: 20170410, end: 20170619
  28. AMLODIPINE MALEATE [Concomitant]
     Active Substance: AMLODIPINE MALEATE
     Dosage: UNK
     Dates: start: 20171115
  29. LEVOTHYROXINE SODIUM [Concomitant]
     Active Substance: LEVOTHYROXINE SODIUM
     Indication: Infected bite
     Dosage: UNK
     Dates: start: 20160201
  30. LEVOTHYROXINE SODIUM [Concomitant]
     Active Substance: LEVOTHYROXINE SODIUM
     Indication: Hypothyroidism
  31. LEVOTHYROXINE SODIUM [Concomitant]
     Active Substance: LEVOTHYROXINE SODIUM
     Indication: Autoimmune thyroiditis
     Dosage: UNK
     Dates: start: 20160412
  32. LEVOTHYROXINE SODIUM [Concomitant]
     Active Substance: LEVOTHYROXINE SODIUM
     Indication: Hypothyroidism
  33. LEVOTHYROXINE SODIUM [Concomitant]
     Active Substance: LEVOTHYROXINE SODIUM
     Indication: Autoimmune thyroiditis
     Dosage: UNK
     Dates: start: 20161010
  34. LEVOTHYROXINE SODIUM [Concomitant]
     Active Substance: LEVOTHYROXINE SODIUM
     Indication: Hypothyroidism
  35. LEVOTHYROXINE SODIUM [Concomitant]
     Active Substance: LEVOTHYROXINE SODIUM
     Indication: Hypothyroidism
     Dosage: UNK UNK, PRN
     Dates: start: 20170109, end: 20170410
  36. LEVOTHYROXINE SODIUM [Concomitant]
     Active Substance: LEVOTHYROXINE SODIUM
     Dosage: UNK
     Dates: start: 20170619, end: 20171115
  37. LEVOTHYROXINE SODIUM [Concomitant]
     Active Substance: LEVOTHYROXINE SODIUM
     Dosage: UNK
     Dates: start: 20180305, end: 20180608
  38. SPIRIVA [Concomitant]
     Active Substance: TIOTROPIUM BROMIDE MONOHYDRATE
     Indication: Product used for unknown indication
     Dosage: UNK
     Dates: start: 20161010, end: 20170210
  39. SPIRIVA [Concomitant]
     Active Substance: TIOTROPIUM BROMIDE MONOHYDRATE
     Dosage: UNK
     Dates: start: 20161216, end: 20170410
  40. SPIRIVA [Concomitant]
     Active Substance: TIOTROPIUM BROMIDE MONOHYDRATE
     Dosage: UNK
     Dates: start: 20161117
  41. SPIRIVA [Concomitant]
     Active Substance: TIOTROPIUM BROMIDE MONOHYDRATE
     Dosage: UNK
     Dates: start: 20170619, end: 20170914
  42. SPIRIVA [Concomitant]
     Active Substance: TIOTROPIUM BROMIDE MONOHYDRATE
     Dosage: UNK
     Dates: start: 20171214, end: 20180305
  43. SPIRIVA [Concomitant]
     Active Substance: TIOTROPIUM BROMIDE MONOHYDRATE
     Dosage: UNK
     Dates: start: 20180608
  44. FENOTEROL HYDROBROMIDE\IPRATROPIUM BROMIDE [Concomitant]
     Active Substance: FENOTEROL HYDROBROMIDE\IPRATROPIUM BROMIDE
     Indication: Dyspnoea
     Dosage: UNK
     Dates: start: 20160317, end: 20160920
  45. Tavor [Concomitant]
     Indication: Product used for unknown indication
     Dosage: 1.0 MILLIGRAM, BID
     Dates: start: 20180713
  46. CEFUROXIME AXETIL [Concomitant]
     Active Substance: CEFUROXIME AXETIL
     Indication: Product used for unknown indication
     Dosage: UNK
     Dates: start: 20170731
  47. CEFUROXIME AXETIL [Concomitant]
     Active Substance: CEFUROXIME AXETIL
     Indication: Influenza like illness
     Dosage: UNK
     Dates: start: 20160927, end: 20171005
  48. MINOCYCLINE HYDROCHLORIDE [Concomitant]
     Active Substance: MINOCYCLINE HYDROCHLORIDE
     Indication: Product used for unknown indication
     Dosage: UNK
     Dates: start: 20170814
  49. MINOCYCLINE HYDROCHLORIDE [Concomitant]
     Active Substance: MINOCYCLINE HYDROCHLORIDE
     Indication: Product used for unknown indication
     Dosage: UNK
     Dates: start: 20161216
  50. AZITHROMYCIN [Concomitant]
     Active Substance: AZITHROMYCIN
     Indication: Product used for unknown indication
     Dosage: UNK
     Dates: start: 20160920
  51. FOSFOMYCIN TROMETHAMINE [Concomitant]
     Active Substance: FOSFOMYCIN TROMETHAMINE
     Indication: Product used for unknown indication
     Dosage: UNK
     Dates: start: 20170819
  52. DICLOFENAC SODIUM [Concomitant]
     Active Substance: DICLOFENAC SODIUM
     Indication: Product used for unknown indication
     Dosage: UNK
     Dates: start: 20160303
  53. DICLOFENAC RATIOPHARM CONSEIL [Concomitant]
     Indication: Product used for unknown indication
     Dosage: 75 MILLIGRAM
     Dates: start: 20171115, end: 20180608
  54. EPINEPHRINE BITARTRATE [Concomitant]
     Active Substance: EPINEPHRINE BITARTRATE
     Indication: Product used for unknown indication
     Dosage: 300 MICROGRAM
     Dates: start: 20171012
  55. BETAMETHASONE [Concomitant]
     Active Substance: BETAMETHASONE
     Indication: Product used for unknown indication
     Dosage: UNK
     Dates: start: 20171012
  56. PANTOPRAZOLE SODIUM [Concomitant]
     Active Substance: PANTOPRAZOLE SODIUM
     Indication: Product used for unknown indication
     Dosage: 40 MILLIGRAM
     Dates: start: 20161216
  57. DIMETHINDENE [Concomitant]
     Active Substance: DIMETHINDENE
     Dosage: UNK
  58. CINNARIZINE\DIMENHYDRINATE [Concomitant]
     Active Substance: CINNARIZINE\DIMENHYDRINATE
     Dosage: UNK
  59. EPINEPHRINE [Concomitant]
     Active Substance: EPINEPHRINE
     Dosage: UNK (AUTO INJECTOR)
  60. FELODIPINE [Concomitant]
     Active Substance: FELODIPINE
     Dosage: UNK
  61. FLUPREDNIDENE ACETATE\MICONAZOLE NITRATE [Concomitant]
     Active Substance: FLUPREDNIDENE ACETATE\MICONAZOLE NITRATE
     Dosage: UNK
  62. AMBROXOL [Concomitant]
     Active Substance: AMBROXOL
     Dosage: UNK
  63. HERBAL NOS [Concomitant]
     Active Substance: HERBALS
     Dosage: UNK
  64. HERBALS [Concomitant]
     Active Substance: HERBALS
     Dosage: UNK
  65. CELECOXIB MICRO LABS [Concomitant]
     Dosage: UNK
  66. IBUPROFEN [Concomitant]
     Active Substance: IBUPROFEN
     Dosage: UNK
  67. DICLOFENAC [Concomitant]
     Active Substance: DICLOFENAC
     Dosage: UNK
  68. NIFEDIPINE [Concomitant]
     Active Substance: NIFEDIPINE
     Dosage: UNK
  69. Carmen [Concomitant]
     Dosage: UNK
  70. TRIAMCINOLONE ACETONIDE [Concomitant]
     Active Substance: TRIAMCINOLONE ACETONIDE
     Dosage: UNK
  71. DICLOFENAC SODIUM [Concomitant]
     Active Substance: DICLOFENAC SODIUM
     Indication: Arthralgia
     Dosage: UNK
  72. MINOCYCLINE [Concomitant]
     Active Substance: MINOCYCLINE HYDROCHLORIDE
     Indication: Rash pustular
     Dosage: UNK
  73. CHOLECALCIFEROL [Concomitant]
     Active Substance: CHOLECALCIFEROL
     Indication: Hypovitaminosis
     Dosage: UNK
  74. Ibuflam [Concomitant]
     Indication: Pain in extremity
     Dosage: UNK
  75. JELLIN NEOMYCIN [Concomitant]
     Dosage: UNK
  76. BRONCHICUM MONO CODEIN [Concomitant]
     Indication: Cough
     Dosage: UNK
  77. AZITHROMYCIN [Concomitant]
     Active Substance: AZITHROMYCIN
     Indication: Ingrowing nail
     Dosage: UNK
  78. LOPERAMID CHLORIDE [Concomitant]
     Dosage: UNK
  79. CIPROFLOXACIN HYDROCHLORIDE [Concomitant]
     Active Substance: CIPROFLOXACIN HYDROCHLORIDE
     Indication: Vulvovaginitis
     Dosage: UNK
  80. BIOFANAL [Concomitant]
     Indication: Vulvovaginal mycotic infection
     Dosage: UNK
  81. MOXIFLOXACIN HYDROCHLORIDE [Concomitant]
     Active Substance: MOXIFLOXACIN HYDROCHLORIDE
     Indication: Pneumonia
     Dosage: UNK
  82. FENOTEROL HYDROBROMIDE [Concomitant]
     Active Substance: FENOTEROL HYDROBROMIDE
     Dosage: UNK
  83. ACEMUC [Concomitant]
     Dosage: UNK
  84. AZITHROMYCIN [Concomitant]
     Active Substance: AZITHROMYCIN
     Indication: Sinusitis
     Dosage: UNK
  85. ERYTHROMYCIN [Concomitant]
     Active Substance: ERYTHROMYCIN
     Dosage: UNK
  86. OPIPRAMOL [Concomitant]
     Active Substance: OPIPRAMOL
     Indication: Panic disorder
     Dosage: UNK
  87. OPIPRAMOL [Concomitant]
     Active Substance: OPIPRAMOL
     Indication: Nervousness
     Dosage: UNK
     Dates: start: 2011, end: 2012
  88. Votum [Concomitant]
     Dosage: UNK
  89. LOSARTAN HENNIG [Concomitant]
     Dosage: UNK
  90. SPIRONOLACTONE [Concomitant]
     Active Substance: SPIRONOLACTONE
     Dosage: UNK

REACTIONS (17)
  - Panic attack [Unknown]
  - Anxiety [Unknown]
  - Mental impairment [Not Recovered/Not Resolved]
  - Impaired quality of life [Not Recovered/Not Resolved]
  - Depression [Not Recovered/Not Resolved]
  - Fear of disease [Unknown]
  - Hyperhidrosis [Unknown]
  - Dyspnoea [Unknown]
  - Sense of oppression [Unknown]
  - Hypertension [Unknown]
  - Dizziness [Unknown]
  - Fatigue [Unknown]
  - Nausea [Unknown]
  - Vertigo [Unknown]
  - Nervousness [Unknown]
  - Sleep disorder [Unknown]
  - Headache [Unknown]
